FAERS Safety Report 8466186-7 (Version None)
Quarter: 2012Q2

REPORT INFORMATION
  Report Type: 
  Country: None (occurrence: None)
  Receive Date: 20120626
  Receipt Date: 20120612
  Transmission Date: 20120825
  Serious: No
  Sender: FDA-Public Use
  Company Number: US-B.I. PHARMACEUTICALS,INC./RIDGEFIELD-2012-BP-09595BP

PATIENT
  Sex: Female
  Weight: 66.22 kg

DRUGS (4)
  1. SPIRIVA [Suspect]
     Indication: CHRONIC OBSTRUCTIVE PULMONARY DISEASE
     Dosage: 18 MCG
     Route: 055
     Dates: start: 20120423
  2. NEURONTIN [Concomitant]
     Indication: PAIN IN EXTREMITY
     Dosage: 900 MG
     Route: 048
     Dates: start: 20020101
  3. ATIVAN [Concomitant]
     Indication: ANXIETY
     Dosage: 2 MG
     Route: 048
     Dates: start: 20020101
  4. AMLODIPINE [Concomitant]
     Indication: HYPERTENSION
     Dosage: 5 MG
     Route: 048
     Dates: start: 20110601

REACTIONS (2)
  - HYPERHIDROSIS [None]
  - DYSPEPSIA [None]
